FAERS Safety Report 4864544-0 (Version None)
Quarter: 2005Q4

REPORT INFORMATION
  Report Type: 
  Country: None (occurrence: None)
  Receive Date: 20051222
  Receipt Date: 20051212
  Transmission Date: 20060501
  Serious: Yes (Life-Threatening, Hospitalization, Disabling, Other)
  Sender: FDA-Public Use
  Company Number: US-JNJFOC-20040601789

PATIENT
  Sex: Female
  Weight: 58.51 kg

DRUGS (10)
  1. EXTRA STRENGTH TYLENOL [Suspect]
     Route: 048
  2. EXTRA STRENGTH TYLENOL [Suspect]
     Indication: ANALGESIC EFFECT
     Route: 048
  3. NEXIUM [Concomitant]
     Route: 048
  4. ACIPHEX [Concomitant]
     Route: 048
  5. ALBUTEROL [Concomitant]
     Route: 055
  6. LORTAB [Concomitant]
  7. LORTAB [Concomitant]
  8. SOMA [Concomitant]
  9. DILANTIN [Concomitant]
  10. ASPIRIN [Concomitant]

REACTIONS (9)
  - COAGULOPATHY [None]
  - COMA [None]
  - HEPATIC FAILURE [None]
  - INFECTION [None]
  - PNEUMONIA [None]
  - RENAL FAILURE [None]
  - RESPIRATORY FAILURE [None]
  - SEPSIS [None]
  - SPLENOMEGALY [None]
